FAERS Safety Report 9035138 (Version 1)
Quarter: 2013Q1

REPORT INFORMATION
  Report Type: Report from Study
  Country: US (occurrence: US)
  Receive Date: 20130129
  Receipt Date: 20130129
  Transmission Date: 20140127
  Serious: No
  Sender: FDA-Public Use
  Company Number: US-ABBOTT-12P-163-0898184-00

PATIENT
  Age: 56 Year
  Sex: Male

DRUGS (14)
  1. HUMIRA 40 MG/0.8 ML PEN [Suspect]
     Indication: PSORIATIC ARTHROPATHY
     Dates: start: 20111226
  2. HUMIRA 40 MG/0.8 ML PEN [Suspect]
     Dosage: ANOTHER 80MG LOADING DOSE
     Dates: start: 20120120, end: 20120120
  3. HUMIRA 40 MG/0.8 ML PEN [Suspect]
     Dates: start: 20120127
  4. LISINOPRIL [Concomitant]
     Indication: BLOOD PRESSURE
  5. MUCINEX [Concomitant]
     Indication: HYPERSENSITIVITY
  6. ANTIDIARRHEAL [Concomitant]
     Indication: PRODUCT USED FOR UNKNOWN INDICATION
  7. METFORMIN [Concomitant]
     Indication: PANCREATIC DISORDER
  8. METFORMIN [Concomitant]
     Indication: DRUG THERAPY
  9. IBUPROFEN [Concomitant]
     Indication: ARTHRALGIA
  10. B6 [Concomitant]
     Indication: PRODUCT USED FOR UNKNOWN INDICATION
  11. B100 [Concomitant]
     Indication: PRODUCT USED FOR UNKNOWN INDICATION
  12. VITAMIN C [Concomitant]
     Indication: PRODUCT USED FOR UNKNOWN INDICATION
  13. OMEGA 3 FISH OIL [Concomitant]
     Indication: PRODUCT USED FOR UNKNOWN INDICATION
  14. VITAMIN D3 [Concomitant]
     Indication: PRODUCT USED FOR UNKNOWN INDICATION
     Dosage: DAILY

REACTIONS (2)
  - Drug effect decreased [Recovering/Resolving]
  - Psoriasis [Unknown]
